FAERS Safety Report 9301032 (Version 1)
Quarter: 2013Q2

REPORT INFORMATION
  Report Type: Spontaneous
  Country: US (occurrence: US)
  Receive Date: 20130521
  Receipt Date: 20130521
  Transmission Date: 20140414
  Serious: No
  Sender: FDA-Public Use
  Company Number: US-PFIZER INC-2013154465

PATIENT
  Sex: Female
  Weight: 82.54 kg

DRUGS (5)
  1. CHANTIX [Suspect]
     Indication: SMOKING CESSATION THERAPY
     Dosage: UNK
  2. DIOVAN HCT [Concomitant]
     Indication: HYPERTENSION
     Dosage: 80/12.5 MG, DAILY
  3. VYTORIN [Concomitant]
     Indication: BLOOD CHOLESTEROL INCREASED
     Dosage: 10/20MG, DAILY
  4. GABAPENTIN [Concomitant]
     Indication: NEUROPATHY PERIPHERAL
     Dosage: 100 MG, 2X/DAY
  5. ALPRAZOLAM [Concomitant]
     Indication: PANIC ATTACK
     Dosage: 0.5 MG (HALF OF 1MG TABLET), 3X/DAY

REACTIONS (4)
  - Movement disorder [Recovered/Resolved]
  - Fatigue [Recovered/Resolved]
  - Feeling abnormal [Recovered/Resolved]
  - Activities of daily living impaired [Recovered/Resolved]
